FAERS Safety Report 21036075 (Version 1)
Quarter: 2022Q3

REPORT INFORMATION
  Report Type: Spontaneous
  Country: US (occurrence: US)
  Receive Date: 20220701
  Receipt Date: 20220701
  Transmission Date: 20221027
  Serious: No
  Sender: FDA-Public Use
  Company Number: US-KRAMERLABS-2021-US-017743

PATIENT
  Age: 66 Year
  Sex: Male
  Weight: 95.26 kg

DRUGS (32)
  1. NIZORAL A-D [Suspect]
     Active Substance: KETOCONAZOLE
     Indication: Skin exfoliation
     Dosage: EVERY 3 DAYS
     Route: 061
     Dates: start: 20210410
  2. TIMOPTIC [Concomitant]
     Active Substance: TIMOLOL MALEATE
  3. CALCITRIOL [Concomitant]
     Active Substance: CALCITRIOL
  4. ZYRTEC [Concomitant]
     Active Substance: CETIRIZINE HYDROCHLORIDE
  5. VALIUM [Concomitant]
     Active Substance: DIAZEPAM
  6. LANOXIN [Concomitant]
     Active Substance: DIGOXIN
  7. ZETIA [Concomitant]
     Active Substance: EZETIMIBE
  8. GABAPENTIN [Concomitant]
     Active Substance: GABAPENTIN
  9. ICOSAPENT ETHYL [Concomitant]
     Active Substance: ICOSAPENT ETHYL
  10. LOSARTAN [Concomitant]
     Active Substance: LOSARTAN
  11. OTC magnesium [Concomitant]
  12. AIMOVIG [Concomitant]
     Active Substance: ERENUMAB-AOOE
  13. MEMANTINE [Concomitant]
     Active Substance: MEMANTINE
  14. TOPROL XL [Concomitant]
     Active Substance: METOPROLOL SUCCINATE
  15. NITROGLYCERIN [Concomitant]
     Active Substance: NITROGLYCERIN
  16. OMEPRAZOLE [Concomitant]
     Active Substance: OMEPRAZOLE
  17. POTASSIUM CHLORIDE [Concomitant]
     Active Substance: POTASSIUM CHLORIDE
  18. REYVOW [Concomitant]
     Active Substance: LASMIDITAN
  19. ZOLOFT [Concomitant]
     Active Substance: SERTRALINE HYDROCHLORIDE
  20. TORSEMIDE [Concomitant]
     Active Substance: TORSEMIDE
  21. ARTANE [Concomitant]
     Active Substance: TRIHEXYPHENIDYL HYDROCHLORIDE
  22. VALTREX [Concomitant]
     Active Substance: VALACYCLOVIR HYDROCHLORIDE
  23. ALIROCUMAB [Concomitant]
     Active Substance: ALIROCUMAB
  24. HUMALOG [Concomitant]
     Active Substance: INSULIN LISPRO
  25. Toujeo insulin [Concomitant]
  26. VITAMIN D3 [Concomitant]
     Active Substance: CHOLECALCIFEROL
  27. LIPITOR [Concomitant]
     Active Substance: ATORVASTATIN CALCIUM
  28. ALPRAZOLAM [Concomitant]
     Active Substance: ALPRAZOLAM
  29. ELIQUIS [Concomitant]
     Active Substance: APIXABAN
  30. ASPIRIN [Concomitant]
     Active Substance: ASPIRIN
  31. BRIMONIDINE [Concomitant]
     Active Substance: BRIMONIDINE TARTRATE
  32. AZOPT [Concomitant]
     Active Substance: BRINZOLAMIDE

REACTIONS (4)
  - Drug ineffective [Not Recovered/Not Resolved]
  - Intentional product misuse [Not Recovered/Not Resolved]
  - Product use in unapproved indication [Not Recovered/Not Resolved]
  - Product administered at inappropriate site [Not Recovered/Not Resolved]

NARRATIVE: CASE EVENT DATE: 20210410
